FAERS Safety Report 4888078-2 (Version None)
Quarter: 2006Q1

REPORT INFORMATION
  Report Type: 
  Country: None (occurrence: None)
  Receive Date: 20060123
  Receipt Date: 20051005
  Transmission Date: 20060701
  Serious: Yes (Hospitalization, Disabling)
  Sender: FDA-Public Use
  Company Number: US-MERCK-0510USA05295

PATIENT
  Age: 80 Year
  Sex: Female
  Weight: 100 kg

DRUGS (6)
  1. VIOXX [Suspect]
     Indication: GOUT
     Route: 048
     Dates: start: 20021026, end: 20021101
  2. VIOXX [Suspect]
     Route: 048
     Dates: start: 20021026, end: 20021101
  3. VIOXX [Suspect]
     Indication: ARTHRITIS
     Route: 048
     Dates: start: 20021026, end: 20021101
  4. VIOXX [Suspect]
     Route: 048
     Dates: start: 20021026, end: 20021101
  5. PROZAC [Concomitant]
     Route: 065
  6. RISPERDAL [Concomitant]
     Route: 065

REACTIONS (5)
  - CARDIAC FAILURE CONGESTIVE [None]
  - CHOLELITHIASIS [None]
  - DEMENTIA [None]
  - DEPRESSION [None]
  - MALAISE [None]
